FAERS Safety Report 25588188 (Version 1)
Quarter: 2025Q3

REPORT INFORMATION
  Report Type: Spontaneous
  Country: MY (occurrence: MY)
  Receive Date: 20250722
  Receipt Date: 20250722
  Transmission Date: 20251021
  Serious: Yes (Other)
  Sender: EXELA PHARMA SCIENCES
  Company Number: MY-EXELAPHARMA-2025EXLA00124

PATIENT
  Age: 16 Year
  Sex: Female
  Weight: 54 kg

DRUGS (13)
  1. BLOXIVERZ [Suspect]
     Active Substance: NEOSTIGMINE METHYLSULFATE
     Indication: Neuromuscular blockade reversal
     Route: 042
  2. DINOPROSTONE [Concomitant]
     Active Substance: DINOPROSTONE
     Indication: Labour induction
     Dosage: 2 DOSES ADMINISTERED 6 HOURS APART
     Route: 067
  3. PROPOFOL [Concomitant]
     Active Substance: PROPOFOL
     Indication: Endotracheal intubation
     Route: 042
  4. SUCCINYLCHOLINE [Concomitant]
     Active Substance: SUCCINYLCHOLINE
     Indication: Endotracheal intubation
     Route: 042
  5. ATRACURIUM [Concomitant]
     Active Substance: ATRACURIUM
     Route: 042
  6. Sevoflurane in a 50:50 oxygen-nitrous [Concomitant]
     Indication: Anaesthesia
  7. ROPIVACAINE [Concomitant]
     Active Substance: ROPIVACAINE
     Indication: Transversus abdominis plane block
  8. ATROPINE [Concomitant]
     Active Substance: ATROPINE
     Indication: Neuromuscular blockade reversal
     Route: 042
  9. FENTANYL [Concomitant]
     Active Substance: FENTANYL
     Indication: Analgesic therapy
     Route: 042
  10. ACETAMINOPHEN [Concomitant]
     Active Substance: ACETAMINOPHEN
     Indication: Analgesic therapy
     Route: 042
  11. MORPHINE [Concomitant]
     Active Substance: MORPHINE
     Indication: Analgesic therapy
     Route: 042
  12. CARBETOCIN [Concomitant]
     Active Substance: CARBETOCIN
     Route: 042
  13. DEXAMETHASONE [Concomitant]
     Active Substance: DEXAMETHASONE
     Route: 042

REACTIONS (1)
  - Drug ineffective [Unknown]
